FAERS Safety Report 21264934 (Version 1)
Quarter: 2022Q3

REPORT INFORMATION
  Report Type: Spontaneous
  Country: US (occurrence: None)
  Receive Date: 20220826
  Receipt Date: 20220826
  Transmission Date: 20221027
  Serious: Yes (Hospitalization)
  Sender: FDA-Public Use
  Company Number: None

PATIENT
  Age: 85 Year
  Sex: Female

DRUGS (1)
  1. CIMZIA [Suspect]
     Active Substance: CERTOLIZUMAB PEGOL
     Dosage: OTHER FREQUENCY : 0,2 WEEKS, 4 WEEKS;?
     Route: 058
     Dates: start: 20220729, end: 20220812

REACTIONS (5)
  - Gout [None]
  - Insomnia [None]
  - Arthralgia [None]
  - Joint swelling [None]
  - Joint warmth [None]

NARRATIVE: CASE EVENT DATE: 20220812
